FAERS Safety Report 4304822-7 (Version None)
Quarter: 2004Q1

REPORT INFORMATION
  Report Type: 
  Country: None (occurrence: None)
  Receive Date: 20040226
  Receipt Date: 20040213
  Transmission Date: 20041129
  Serious: Yes (Other)
  Sender: FDA-Public Use
  Company Number: PHNU2004DE00916

PATIENT
  Sex: Male

DRUGS (1)
  1. TEGRETOL-XR [Suspect]
     Route: 048

REACTIONS (2)
  - HEPATITIS C [None]
  - LIVER FUNCTION TEST ABNORMAL [None]
